FAERS Safety Report 19780759 (Version 1)
Quarter: 2021Q3

REPORT INFORMATION
  Report Type: Spontaneous
  Country: US (occurrence: US)
  Receive Date: 20210902
  Receipt Date: 20210902
  Transmission Date: 20211014
  Serious: No
  Sender: FDA-Public Use
  Company Number: US-PFIZER INC-202101006804

PATIENT
  Age: 98 Year
  Sex: Male

DRUGS (1)
  1. SERTRALINE HCL [Suspect]
     Active Substance: SERTRALINE HYDROCHLORIDE
     Dosage: UNK
     Dates: start: 202107

REACTIONS (3)
  - Abnormal behaviour [Unknown]
  - Speech disorder [Unknown]
  - Product preparation error [Unknown]

NARRATIVE: CASE EVENT DATE: 20210803
